FAERS Safety Report 7151747-8 (Version None)
Quarter: 2010Q4

REPORT INFORMATION
  Report Type: 
  Country: None (occurrence: None)
  Receive Date: 20101210
  Receipt Date: 20101129
  Transmission Date: 20110411
  Serious: Yes (Hospitalization, Other)
  Sender: FDA-Public Use
  Company Number: PHHY2010JP56541

PATIENT
  Age: 55 Year
  Sex: Male

DRUGS (9)
  1. NEORAL [Suspect]
     Indication: PSORIASIS
     Dosage: 200 MG, QD
     Route: 048
     Dates: start: 20070316
  2. NEORAL [Suspect]
     Dosage: 100 MG, QD
     Route: 048
     Dates: end: 20070627
  3. NEORAL [Suspect]
     Dosage: 75MG/DAY
  4. PREDNISOLONE [Suspect]
     Indication: PSORIASIS
     Dosage: 5MG DAILY
     Route: 048
     Dates: start: 20070421, end: 20070509
  5. TACROLIMUS [Concomitant]
  6. ITRACONAZOLE [Concomitant]
     Indication: ORAL CANDIDIASIS
     Route: 048
  7. METHOTREXATE [Concomitant]
     Dosage: 2 MG/WEEK
     Route: 048
  8. INFLIXIMAB [Concomitant]
     Dosage: 200 MG (4 MG/KG)
  9. STEROIDS NOS [Concomitant]
     Route: 048

REACTIONS (14)
  - ARTHROPATHY [None]
  - BLOOD BETA-D-GLUCAN DECREASED [None]
  - BLOOD CREATININE INCREASED [None]
  - DYSSTASIA [None]
  - ERYTHEMA [None]
  - IMMUNOSUPPRESSANT DRUG LEVEL INCREASED [None]
  - INTRAOCULAR PRESSURE INCREASED [None]
  - JOINT SWELLING [None]
  - PAIN [None]
  - PSORIASIS [None]
  - RENAL IMPAIRMENT [None]
  - RHEUMATOID ARTHRITIS [None]
  - SKIN DISORDER [None]
  - TENDONITIS [None]
